FAERS Safety Report 6189508-9 (Version None)
Quarter: 2009Q2

REPORT INFORMATION
  Report Type: 
  Country: None (occurrence: None)
  Receive Date: 20090514
  Receipt Date: 20090505
  Transmission Date: 20091009
  Serious: Yes (Other)
  Sender: FDA-Public Use
  Company Number: US-PFIZER INC-2009209347

PATIENT
  Sex: Female
  Weight: 63 kg

DRUGS (2)
  1. LIPITOR [Suspect]
     Indication: BLOOD CHOLESTEROL INCREASED
     Dosage: 40 MG, 1X/DAY
     Route: 048
  2. EVISTA [Concomitant]
     Dosage: UNK

REACTIONS (5)
  - ALOPECIA [None]
  - AMNESIA [None]
  - BLOOD CHOLESTEROL INCREASED [None]
  - COGNITIVE DISORDER [None]
  - THYROID DISORDER [None]
